FAERS Safety Report 16048613 (Version 1)
Quarter: 2019Q1

REPORT INFORMATION
  Report Type: Spontaneous
  Country: US (occurrence: US)
  Receive Date: 20190307
  Receipt Date: 20190307
  Transmission Date: 20190418
  Serious: No
  Sender: FDA-Public Use
  Company Number: US-SA-2019SA062026

PATIENT
  Age: 63 Year
  Sex: Male

DRUGS (25)
  1. METFORMIN [Concomitant]
     Active Substance: METFORMIN HYDROCHLORIDE
  2. NITROGLYCERIN. [Concomitant]
     Active Substance: NITROGLYCERIN
  3. LANTUS [Concomitant]
     Active Substance: INSULIN GLARGINE
  4. VITAMIN B12 [Concomitant]
     Active Substance: CYANOCOBALAMIN
  5. MELATONIN [Concomitant]
     Active Substance: MELATONIN
  6. HYDROCODONE/HOMATROPINE [Concomitant]
     Active Substance: HOMATROPINE METHYLBROMIDE\HYDROCODONE BITARTRATE
  7. VENTOLIN [Concomitant]
     Active Substance: ALBUTEROL SULFATE
  8. MAGNESIUM OXIDE. [Concomitant]
     Active Substance: MAGNESIUM OXIDE
  9. MIRALAX [Concomitant]
     Active Substance: POLYETHYLENE GLYCOL 3350
  10. HUMALOG [Concomitant]
     Active Substance: INSULIN LISPRO
  11. VITAMIN D3 [Concomitant]
     Active Substance: CHOLECALCIFEROL
  12. VITAMIN C-500 COMPLEX [Concomitant]
  13. OXYCODONE [Concomitant]
     Active Substance: OXYCODONE
  14. PYRIDIUM [Concomitant]
     Active Substance: PHENAZOPYRIDINE
  15. IRON (SALT NOT SPECIFIED) [Suspect]
     Active Substance: IRON
     Dosage: UNK
     Dates: start: 20190217
  16. FUROSEMIDE. [Concomitant]
     Active Substance: FUROSEMIDE
  17. TEMAZEPAM. [Concomitant]
     Active Substance: TEMAZEPAM
  18. LOVENOX [Suspect]
     Active Substance: ENOXAPARIN SODIUM
     Indication: DEEP VEIN THROMBOSIS
     Dosage: 60 MG, QD
     Dates: start: 20190226
  19. ELIQUIS [Suspect]
     Active Substance: APIXABAN
  20. ZETIA [Concomitant]
     Active Substance: EZETIMIBE
  21. LORATADIN [Concomitant]
     Active Substance: LORATADINE
  22. DILTIAZEM. [Concomitant]
     Active Substance: DILTIAZEM
  23. DEXILANT [Concomitant]
     Active Substance: DEXLANSOPRAZOLE
  24. TIZANIDINE. [Concomitant]
     Active Substance: TIZANIDINE
  25. CBD OIL [Concomitant]
     Active Substance: CANNABIDIOL\HERBALS

REACTIONS (2)
  - Haemoglobin decreased [Unknown]
  - Platelet disorder [Unknown]
